FAERS Safety Report 9125591 (Version 1)
Quarter: 2013Q1

REPORT INFORMATION
  Report Type: Spontaneous
  Country: NO (occurrence: NO)
  Receive Date: 20130117
  Receipt Date: 20130117
  Transmission Date: 20140127
  Serious: Yes (Hospitalization)
  Sender: FDA-Public Use
  Company Number: NO-ASTRAZENECA-2013SE02617

PATIENT
  Age: 31 Year
  Sex: Female

DRUGS (5)
  1. SEROQUEL [Suspect]
     Indication: PSYCHOTIC DISORDER
     Route: 048
     Dates: start: 200603, end: 201212
  2. TRIATEC [Concomitant]
     Route: 048
  3. ALBYL-E [Concomitant]
     Route: 048
  4. CIPRALEX [Concomitant]
     Indication: ANXIETY DISORDER
     Route: 048
     Dates: start: 2006
  5. TRILAFON [Concomitant]
     Indication: PSYCHOTIC DISORDER
     Dosage: 6-12 MG X 1
     Route: 048
     Dates: start: 2006

REACTIONS (1)
  - Eosinophilic fasciitis [Recovering/Resolving]
